FAERS Safety Report 18480997 (Version 1)
Quarter: 2020Q4

REPORT INFORMATION
  Report Type: Spontaneous
  Country: US (occurrence: US)
  Receive Date: 20201109
  Receipt Date: 20201109
  Transmission Date: 20210114
  Serious: Yes (Death)
  Sender: FDA-Public Use
  Company Number: None

PATIENT
  Age: 62 Year
  Sex: Male
  Weight: 80 kg

DRUGS (1)
  1. CHOLECALCIFEROL (VIT D) [Suspect]
     Active Substance: CHOLECALCIFEROL
     Indication: UNEVALUABLE INVESTIGATION
     Dosage: ?          OTHER FREQUENCY:MONTHLY;?
     Route: 048
     Dates: start: 20191007, end: 20191218

REACTIONS (3)
  - Treatment failure [None]
  - Disease progression [None]
  - T-cell lymphoma [None]

NARRATIVE: CASE EVENT DATE: 20191221
